FAERS Safety Report 23419578 (Version 1)
Quarter: 2024Q1

REPORT INFORMATION
  Report Type: Other
  Country: US (occurrence: None)
  Receive Date: 20240118
  Receipt Date: 20240118
  Transmission Date: 20240410
  Serious: Yes (Hospitalization)
  Sender: FDA-Public Use
  Company Number: US-ROCHE-2329599

PATIENT
  Age: 56 Year
  Sex: Female
  Weight: 149.82 kg

DRUGS (6)
  1. OCREVUS [Suspect]
     Active Substance: OCRELIZUMAB
     Indication: Relapsing-remitting multiple sclerosis
     Dosage: ON -MAY-2017, 17/MAY/2018, 31/MAY/2018, 29/NOV/2018, 24/JUN/2019, 17/DEC/2019, 25/JUN/2020 AND 23/DE
     Route: 042
     Dates: start: 201801
  2. AMPYRA [Concomitant]
     Active Substance: DALFAMPRIDINE
  3. BACLOFEN [Concomitant]
     Active Substance: BACLOFEN
     Indication: Muscle spasms
     Dosage: 3 TIMES A DAY AS NEEDED ;
  4. AMANTADINE [Concomitant]
     Active Substance: AMANTADINE
     Indication: Muscular weakness
  5. VITAMIN D3 [Concomitant]
     Active Substance: CHOLECALCIFEROL
     Dosage: IN THE MORNING
  6. DALFAMPRIDINE [Concomitant]
     Active Substance: DALFAMPRIDINE

REACTIONS (5)
  - Fall [Unknown]
  - Asthenia [Unknown]
  - Aspartate aminotransferase decreased [Unknown]
  - Demyelination [Unknown]
  - Multiple sclerosis [Unknown]

NARRATIVE: CASE EVENT DATE: 20190523
